FAERS Safety Report 8015506-6 (Version None)
Quarter: 2011Q4

REPORT INFORMATION
  Report Type: 
  Country: None (occurrence: None)
  Receive Date: 20111230
  Receipt Date: 20111228
  Transmission Date: 20120403
  Serious: Yes (Life-Threatening, Hospitalization, Other)
  Sender: FDA-Public Use
  Company Number: JP-BAYER-2011-038939

PATIENT
  Age: 74 Year
  Sex: Male
  Weight: 59 kg

DRUGS (14)
  1. NOVORAPID [Concomitant]
     Dosage: DAILY DOSE 28 U
     Route: 058
  2. CLARITHROMYCIN [Concomitant]
     Indication: BRONCHITIS
     Dosage: DAILY DOSE 400 MG
     Route: 048
     Dates: start: 20110714
  3. MONILAC [Concomitant]
     Indication: HEPATIC ENCEPHALOPATHY PROPHYLAXIS
     Dosage: DAILY DOSE 30 ML
     Route: 048
  4. DESYREL [Concomitant]
     Dosage: DAILY DOSE 25 MG
     Route: 048
     Dates: start: 20110511
  5. MOBIC [Suspect]
     Dosage: UNK
     Route: 048
     Dates: start: 20110421, end: 20110428
  6. LENDORMIN [Concomitant]
     Dosage: DAILY DOSE .25 MG
     Route: 048
  7. PLETAL [Concomitant]
     Dosage: DAILY DOSE 100 MG
     Route: 048
  8. OMEPRAZOLE [Concomitant]
     Dosage: DAILY DOSE 20 MG
     Route: 048
  9. MAGNESIUM SULFATE [Concomitant]
     Dosage: DAILY DOSE 990 MG
     Route: 048
  10. FLAVERIC [Concomitant]
     Indication: BRONCHITIS
     Dosage: DAILY DOSE 60 MG
     Route: 048
     Dates: start: 20110714
  11. NEXAVAR [Suspect]
     Indication: HEPATIC CANCER METASTATIC
     Dosage: 200 MG, BID
     Route: 048
     Dates: start: 20110322, end: 20110428
  12. SIGMART [Concomitant]
     Dosage: DAILY DOSE 15 MG
     Route: 048
  13. MIYA BM [Concomitant]
     Indication: HEPATIC ENCEPHALOPATHY PROPHYLAXIS
     Dosage: DAILY DOSE 1.5 MG
     Route: 048
  14. CANDESARTAN CILEXETIL [Concomitant]
     Indication: HYPERTENSION
     Dosage: DAILY DOSE 8 MG
     Route: 048

REACTIONS (3)
  - HEPATIC ENCEPHALOPATHY [None]
  - HEPATIC FUNCTION ABNORMAL [None]
  - COAGULOPATHY [None]
